FAERS Safety Report 10272951 (Version 1)
Quarter: 2014Q1

REPORT INFORMATION
  Report Type: Spontaneous
  Country: US (occurrence: None)
  Receive Date: 20140306
  Receipt Date: 20140306
  Transmission Date: 20141002
  Serious: Yes (Hospitalization)
  Sender: FDA-Public Use
  Company Number: 163-21880-13081321

PATIENT
  Age: 56 Year
  Sex: Male
  Weight: 93 kg

DRUGS (13)
  1. REVLIMID [Suspect]
     Indication: PLASMA CELL MYELOMA
     Dosage: 21 IN 28 D, PO
     Route: 048
     Dates: start: 201201
  2. OXYCODONE HCL (OXYCODONE HYDROCHLORIDE) (TABLETS) [Concomitant]
  3. METOPROLOL TARTRATE (METOPROLOL TARTRATE) (TABLETS) [Concomitant]
  4. OXYCODONE-ACETAMINOPHEN) [Concomitant]
  5. HYDROCODONE/ACETAMINOPHEN (REMEDEINE) [Concomitant]
  6. ZOMETA(ZOLEDRONIC ACID) [Concomitant]
  7. LISINOPRIL HCTZ (ZESTORETIC) (TABLETS) [Concomitant]
  8. LEVOFLOXACIN (LEVOFLOXACIN) (TABLETS) [Concomitant]
  9. ASPIRIN (TABLETS) [Concomitant]
  10. VITAMIN B12 (CYANOCOBALAMIN) [Concomitant]
  11. AMLODIPINE BESYLATE (AMLODIPINE BESILATE) (TABLETS) [Concomitant]
  12. PRAVASTATIN SODIUM (PRAVASTATIN SODIUM) (TABLETS) [Concomitant]
  13. PROMETHAZINE (PROMETHAZINE) TABLETS [Concomitant]

REACTIONS (1)
  - Salmonellosis [None]
